FAERS Safety Report 18876364 (Version 1)
Quarter: 2021Q1

REPORT INFORMATION
  Report Type: Spontaneous
  Country: US (occurrence: US)
  Receive Date: 20210210
  Receipt Date: 20210210
  Transmission Date: 20210420
  Serious: Yes (Other)
  Sender: FDA-Public Use
  Company Number: US-JAZZ-2021-US-001459

PATIENT
  Sex: Female

DRUGS (2)
  1. SUNOSI [Suspect]
     Active Substance: SOLRIAMFETOL
     Indication: CATAPLEXY
     Dosage: 75 MILLIGRAM, QD
     Route: 048
     Dates: start: 2020, end: 202012
  2. SUNOSI [Suspect]
     Active Substance: SOLRIAMFETOL
     Indication: NARCOLEPSY
     Dosage: 75 MILLIGRAM HALF TABLET DAILY
     Route: 048
     Dates: start: 202011, end: 2020

REACTIONS (5)
  - Optic nerve injury [Not Recovered/Not Resolved]
  - Weight increased [Unknown]
  - Fibromyalgia [Recovered/Resolved]
  - Dry eye [Unknown]
  - Headache [Recovering/Resolving]

NARRATIVE: CASE EVENT DATE: 2020
